FAERS Safety Report 12568349 (Version 3)
Quarter: 2016Q4

REPORT INFORMATION
  Report Type: Report from Study
  Country: BR (occurrence: BR)
  Receive Date: 20160718
  Receipt Date: 20161004
  Transmission Date: 20170207
  Serious: Yes (Death, Hospitalization, Other)
  Sender: FDA-Public Use
  Company Number: PHHY2016BR097434

PATIENT
  Sex: Male

DRUGS (2)
  1. HYDREA [Concomitant]
     Active Substance: HYDROXYUREA
     Indication: PRODUCT USED FOR UNKNOWN INDICATION
     Route: 065
  2. EXJADE [Suspect]
     Active Substance: DEFERASIROX
     Indication: CHRONIC MYELOID LEUKAEMIA
     Dosage: 2 DF, QD (2 DF OF 500 MG)
     Route: 048
     Dates: start: 2015, end: 2016

REACTIONS (7)
  - Abasia [Unknown]
  - Chronic myeloid leukaemia [Fatal]
  - Laboratory test abnormal [Unknown]
  - Anaemia [Unknown]
  - Dehydration [Unknown]
  - Malignant neoplasm progression [Fatal]
  - Asthenia [Unknown]
